FAERS Safety Report 8596530-1 (Version None)
Quarter: 2012Q3

REPORT INFORMATION
  Report Type: 
  Country: None (occurrence: None)
  Receive Date: 20120815
  Receipt Date: 20120809
  Transmission Date: 20120928
  Serious: Yes (Hospitalization, Other)
  Sender: FDA-Public Use
  Company Number: US-PURDUE-USA-2012-0091094

PATIENT
  Sex: Male

DRUGS (24)
  1. LISINOPRIL [Concomitant]
     Indication: PRODUCT USED FOR UNKNOWN INDICATION
  2. HUMULIN N [Concomitant]
     Indication: PRODUCT USED FOR UNKNOWN INDICATION
  3. SULFAMETHOXAZOLE [Concomitant]
     Indication: PRODUCT USED FOR UNKNOWN INDICATION
  4. CITALOPRAM [Concomitant]
     Indication: PRODUCT USED FOR UNKNOWN INDICATION
  5. PLACEBO [Suspect]
     Indication: PROSTATE CANCER
     Dosage: UNK
     Route: 041
     Dates: start: 20111206, end: 20120529
  6. TRAZODONE HYDROCHLORIDE [Concomitant]
     Indication: PRODUCT USED FOR UNKNOWN INDICATION
  7. OXYCONTIN [Suspect]
     Indication: PRODUCT USED FOR UNKNOWN INDICATION
     Dosage: 20 MG, BID
     Route: 048
  8. IPILIMUMAB [Suspect]
     Indication: PROSTATE CANCER
     Dosage: 295 MG, UNK
     Route: 041
     Dates: start: 20111206, end: 20120529
  9. ASPIRIN [Concomitant]
     Indication: PRODUCT USED FOR UNKNOWN INDICATION
  10. BUSPAR [Concomitant]
     Indication: PRODUCT USED FOR UNKNOWN INDICATION
  11. PREDNISONE TAB [Concomitant]
     Dosage: UNK
     Dates: start: 20120724
  12. PAXIL [Concomitant]
     Indication: PRODUCT USED FOR UNKNOWN INDICATION
  13. OXYCODONE HCL [Suspect]
     Indication: BACK PAIN
     Dosage: 10 MG, PRN
     Route: 048
     Dates: start: 20120101
  14. ACTOS [Concomitant]
     Indication: PRODUCT USED FOR UNKNOWN INDICATION
  15. AMARYL [Concomitant]
     Indication: PRODUCT USED FOR UNKNOWN INDICATION
  16. PREDNISONE TAB [Concomitant]
     Indication: PRURITUS
     Dosage: UNK
  17. ZOCOR [Concomitant]
     Indication: PRODUCT USED FOR UNKNOWN INDICATION
  18. ALEVE [Concomitant]
     Indication: PRODUCT USED FOR UNKNOWN INDICATION
  19. CELEBREX [Concomitant]
     Indication: BACK PAIN
     Dosage: UNK
     Dates: start: 20120724
  20. METFORMIN HYDROCHLORIDE [Concomitant]
     Indication: PRODUCT USED FOR UNKNOWN INDICATION
  21. TITRALAC                           /00183701/ [Concomitant]
     Indication: PRODUCT USED FOR UNKNOWN INDICATION
  22. TRIAMCINOLONE [Concomitant]
     Indication: PRODUCT USED FOR UNKNOWN INDICATION
  23. HUMULIN R [Concomitant]
     Indication: PRODUCT USED FOR UNKNOWN INDICATION
  24. NOVOLIN 70/30 [Concomitant]
     Indication: PRODUCT USED FOR UNKNOWN INDICATION

REACTIONS (14)
  - CELLULITIS [None]
  - ANXIETY [None]
  - INSOMNIA [None]
  - WITHDRAWAL SYNDROME [None]
  - TREMOR [None]
  - DIARRHOEA [None]
  - DRUG DEPENDENCE [None]
  - ANTIBIOTIC RESISTANT STAPHYLOCOCCUS TEST [None]
  - SKIN ULCER [None]
  - PSYCHOTIC DISORDER [None]
  - TACHYCARDIA [None]
  - RESTLESSNESS [None]
  - DRUG ABUSE [None]
  - HYPERHIDROSIS [None]
